FAERS Safety Report 6145276-8 (Version None)
Quarter: 2009Q2

REPORT INFORMATION
  Report Type: 
  Country: None (occurrence: None)
  Receive Date: 20090406
  Receipt Date: 20090406
  Transmission Date: 20091009
  Serious: Yes (Death, Hospitalization)
  Sender: FDA-Public Use
  Company Number: PHHO2007DK02384

PATIENT
  Sex: Female
  Weight: 104 kg

DRUGS (2)
  1. CGS 20267 T30748+ [Suspect]
     Indication: BREAST CANCER
     Dosage: 2.5 MG, QD
     Route: 048
     Dates: end: 20070201
  2. TAMOXIFEN CITRATE [Suspect]
     Dosage: 20 MG, QD
     Dates: start: 20020117

REACTIONS (1)
  - CEREBROVASCULAR ACCIDENT [None]
